FAERS Safety Report 7083185-0 (Version None)
Quarter: 2010Q4

REPORT INFORMATION
  Report Type: 
  Country: None (occurrence: None)
  Receive Date: 20101026
  Receipt Date: 20101011
  Transmission Date: 20110411
  Serious: Yes (Disabling, Other)
  Sender: FDA-Public Use
  Company Number: AUR-APL-2010-02547

PATIENT
  Age: 47 Year
  Sex: Female
  Weight: 78 kg

DRUGS (2)
  1. FLUOXETINE [Suspect]
     Indication: DEPRESSION
     Dosage: 20 MG - ORAL
     Route: 048
     Dates: start: 20100827, end: 20100906
  2. ESCITALOPRAM OXALATE [Suspect]
     Indication: DEPRESSION
     Dosage: 10MG - ORAL
     Route: 048
     Dates: start: 20100907, end: 20100916

REACTIONS (3)
  - ANXIETY [None]
  - BLOOD PRESSURE INCREASED [None]
  - PANIC ATTACK [None]
